FAERS Safety Report 8641576 (Version 2)
Quarter: 2012Q4

REPORT INFORMATION
  Report Type: 
  Country: JP (occurrence: JP)
  Receive Date: 20120628
  Receipt Date: 20121214
  Transmission Date: 20130627
  Serious: Yes (Hospitalization)
  Sender: FDA-Public Use
  Company Number: JP-ASTRAZENECA-2012SE42057

PATIENT
  Age: 72 Year
  Sex: Female

DRUGS (3)
  1. CRESTOR [Suspect]
     Indication: HYPERCHOLESTEROLAEMIA
     Route: 048
  2. RINDERON [Concomitant]
     Dosage: Dose unknown
     Route: 048
  3. PERDIPINE [Concomitant]
     Route: 048

REACTIONS (1)
  - Vasculitis [Recovering/Resolving]
